FAERS Safety Report 5743312-1 (Version None)
Quarter: 2008Q2

REPORT INFORMATION
  Report Type: 
  Country: None (occurrence: None)
  Receive Date: 20080519
  Receipt Date: 20080507
  Transmission Date: 20081010
  Serious: Yes (Death)
  Sender: FDA-Public Use
  Company Number: PT-PFIZER INC-2008040241

PATIENT
  Sex: Male
  Weight: 56 kg

DRUGS (9)
  1. SUTENT [Suspect]
     Indication: RENAL CANCER METASTATIC
     Route: 048
     Dates: start: 20080228, end: 20080314
  2. FLUVASTATIN SODIUM [Concomitant]
     Route: 048
  3. THIOCOLCHICOSIDE [Concomitant]
  4. DICLOFENAC [Concomitant]
  5. OMEPRAZOLE [Concomitant]
     Route: 048
     Dates: start: 20080229, end: 20080314
  6. ENOXAPARIN SODIUM [Concomitant]
  7. DEXAMETHASONE [Concomitant]
     Route: 048
     Dates: start: 20080229, end: 20080314
  8. RAMIPRIL [Concomitant]
     Route: 048
  9. MORPHINE [Concomitant]
     Route: 048
     Dates: start: 20080229, end: 20080314

REACTIONS (4)
  - DEATH [None]
  - GASTROINTESTINAL HAEMORRHAGE [None]
  - MELAENA [None]
  - SHOCK HAEMORRHAGIC [None]
